FAERS Safety Report 16955196 (Version 5)
Quarter: 2019Q4

REPORT INFORMATION
  Report Type: Spontaneous
  Country: US (occurrence: US)
  Receive Date: 20191024
  Receipt Date: 20191106
  Transmission Date: 20200122
  Serious: Yes (Hospitalization)
  Sender: FDA-Public Use
  Company Number: US-UNITED THERAPEUTICS-UNT-2019-017630

PATIENT
  Age: 76 Year
  Sex: Female
  Weight: 46.71 kg

DRUGS (2)
  1. TYVASO [Suspect]
     Active Substance: TREPROSTINIL
     Indication: PULMONARY ARTERIAL HYPERTENSION
     Dosage: 18-54 ?G, QID
     Dates: start: 20191010, end: 20191031
  2. SILDENAFIL CITRATE. [Concomitant]
     Active Substance: SILDENAFIL CITRATE
     Indication: PRODUCT USED FOR UNKNOWN INDICATION
     Dosage: UNK
     Route: 065

REACTIONS (14)
  - Cough [Recovered/Resolved]
  - Eye swelling [Unknown]
  - Dyspnoea exertional [Unknown]
  - Hot flush [Unknown]
  - Headache [Recovering/Resolving]
  - Throat irritation [Unknown]
  - Eye irritation [Unknown]
  - Chest pain [Unknown]
  - Throat tightness [Unknown]
  - Oropharyngeal pain [Unknown]
  - Irritable bowel syndrome [Unknown]
  - Diarrhoea [Recovered/Resolved]
  - Dysphagia [Unknown]
  - Oropharyngeal discomfort [Recovering/Resolving]

NARRATIVE: CASE EVENT DATE: 201910
